FAERS Safety Report 14901191 (Version 1)
Quarter: 2018Q2

REPORT INFORMATION
  Report Type: Spontaneous
  Country: US (occurrence: US)
  Receive Date: 20180516
  Receipt Date: 20180516
  Transmission Date: 20180711
  Serious: Yes (Other)
  Sender: FDA-Public Use
  Company Number: US-PFIZER INC-2018196231

PATIENT
  Age: 74 Year
  Sex: Female
  Weight: 41.28 kg

DRUGS (9)
  1. ADVIL [Suspect]
     Active Substance: IBUPROFEN
     Dosage: 200 MG, 2X/DAY
     Route: 048
     Dates: start: 201711
  2. ADVIL [Suspect]
     Active Substance: IBUPROFEN
     Dosage: 200 MG, SIX TIMES A DAY
     Route: 048
     Dates: start: 2018
  3. ADVIL [Suspect]
     Active Substance: IBUPROFEN
     Dosage: 200 MG, 3X/DAY
     Route: 048
     Dates: start: 201712
  4. HYDROCODONE [Concomitant]
     Active Substance: HYDROCODONE
     Indication: PAIN
     Dosage: 5/325 TABLETS BY MOUTH SIX TIMES A DAY
     Route: 048
  5. TOPROL XL [Concomitant]
     Active Substance: METOPROLOL SUCCINATE
     Indication: BLOOD PRESSURE ABNORMAL
     Dosage: 100 MG, 1X/DAY
     Route: 048
  6. MEPROBAMATE. [Concomitant]
     Active Substance: MEPROBAMATE
     Indication: ANXIETY
     Dosage: 400 MG, 4X/DAY
     Route: 048
  7. TYLENOL [Concomitant]
     Active Substance: ACETAMINOPHEN
     Indication: PAIN
     Dosage: 325 MG, 4X/DAY
     Route: 048
     Dates: start: 201804, end: 2018
  8. ADVIL [Suspect]
     Active Substance: IBUPROFEN
     Indication: PAIN
     Dosage: 200 MG, 1X/DAY
     Route: 048
     Dates: start: 201711
  9. ADVIL [Suspect]
     Active Substance: IBUPROFEN
     Dosage: 200 MG, 4X/DAY
     Route: 048
     Dates: start: 201801

REACTIONS (5)
  - Intervertebral disc protrusion [Unknown]
  - Decreased appetite [Not Recovered/Not Resolved]
  - Weight decreased [Not Recovered/Not Resolved]
  - Inflammation [Unknown]
  - Urinary tract infection [Unknown]
